FAERS Safety Report 18017283 (Version 1)
Quarter: 2020Q3

REPORT INFORMATION
  Report Type: Spontaneous
  Country: US (occurrence: US)
  Receive Date: 20200714
  Receipt Date: 20200714
  Transmission Date: 20201103
  Serious: Yes (Other)
  Sender: FDA-Public Use
  Company Number: US-DRREDDYS-USA/USA/20/0124896

PATIENT
  Sex: Male

DRUGS (1)
  1. CIPROFLOXACIN. [Suspect]
     Active Substance: CIPROFLOXACIN
     Indication: PROPHYLAXIS URINARY TRACT INFECTION
     Dosage: PRESCRIBED AS 3 DAY COURSE
     Dates: start: 20180322, end: 20180324

REACTIONS (15)
  - Suicidal ideation [Not Recovered/Not Resolved]
  - Emotional distress [Unknown]
  - Economic problem [Unknown]
  - Disturbance in attention [Not Recovered/Not Resolved]
  - Agitation [Not Recovered/Not Resolved]
  - Physical disability [Unknown]
  - Memory impairment [Not Recovered/Not Resolved]
  - Discomfort [Unknown]
  - Anxiety [Not Recovered/Not Resolved]
  - Injury [Unknown]
  - Disorientation [Not Recovered/Not Resolved]
  - Nervousness [Not Recovered/Not Resolved]
  - Tendon rupture [Not Recovered/Not Resolved]
  - Depression [Not Recovered/Not Resolved]
  - Pain [Unknown]

NARRATIVE: CASE EVENT DATE: 20180428
